FAERS Safety Report 6462182-X (Version None)
Quarter: 2009Q4

REPORT INFORMATION
  Report Type: 
  Country: None (occurrence: None)
  Receive Date: 20091130
  Receipt Date: 20091116
  Transmission Date: 20100525
  Serious: Yes (Other)
  Sender: FDA-Public Use
  Company Number: GB-ELI_LILLY_AND_COMPANY-GB200911003737

PATIENT
  Sex: Male
  Weight: 100 kg

DRUGS (4)
  1. CIALIS [Suspect]
     Indication: ERECTILE DYSFUNCTION
     Dosage: 20 MG, UNK
     Route: 048
     Dates: start: 20090828
  2. OMEPRAZOLE [Concomitant]
     Dosage: 20 MG, UNK
  3. RAMIPRIL [Concomitant]
     Dosage: 5 MG, UNK
     Route: 048
  4. WARFARIN SODIUM [Concomitant]
     Dosage: 5 MG, UNK
     Route: 048

REACTIONS (3)
  - DYSURIA [None]
  - HEADACHE [None]
  - MYALGIA [None]
